FAERS Safety Report 6232347-0 (Version None)
Quarter: 2009Q2

REPORT INFORMATION
  Report Type: 
  Country: None (occurrence: None)
  Receive Date: 20090617
  Receipt Date: 20071120
  Transmission Date: 20091009
  Serious: Yes (Other)
  Sender: FDA-Public Use
  Company Number: US-ASTRAZENECA-2006UW23512

PATIENT
  Age: 11478 Day
  Sex: Female
  Weight: 81.6 kg

DRUGS (19)
  1. SEROQUEL [Suspect]
     Indication: BIPOLAR DISORDER
     Route: 048
     Dates: start: 20020401, end: 20060601
  2. SEROQUEL [Suspect]
     Route: 048
     Dates: start: 20021219
  3. ZYPREXA [Suspect]
     Dates: start: 19981101, end: 19981201
  4. ZYPREXA [Suspect]
     Route: 048
     Dates: start: 19980101
  5. RISPERDAL [Concomitant]
     Dates: start: 20040501, end: 20041201
  6. RISPERDAL [Concomitant]
     Dates: start: 20010411
  7. NEURONTIN [Concomitant]
     Route: 048
     Dates: start: 20010411
  8. WELLBUTRIN [Concomitant]
     Dates: start: 20010411
  9. GLYBURIDE [Concomitant]
     Indication: EATING DISORDER
     Dosage: 1.25 MG
     Route: 048
     Dates: end: 20020227
  10. GLYBURIDE [Concomitant]
     Dosage: 2.5 MG PRN
     Route: 048
     Dates: start: 20020319
  11. DEPAKOTE [Concomitant]
     Indication: BIPOLAR I DISORDER
     Dosage: 500 MG TWO TABLETS QHS
     Dates: start: 20020227, end: 20030421
  12. DEPAKOTE ER [Concomitant]
     Indication: BIPOLAR I DISORDER
     Dosage: 1000 MG
     Dates: start: 20031124
  13. ANAFRANIL [Concomitant]
     Dosage: TID
     Dates: start: 20020211
  14. ACTONEL [Concomitant]
     Dosage: 1 TAB DAILY
     Dates: start: 20020417
  15. SYNTHROID [Concomitant]
     Dates: start: 20020211
  16. PREVACID [Concomitant]
     Dates: start: 20020211
  17. COMBIVENT [Concomitant]
     Indication: ASTHMA
     Dosage: THREE TIMES A DAY
     Dates: start: 20030101
  18. FOSAMAX [Concomitant]
     Dates: start: 20020101
  19. COUMADIN [Concomitant]
     Dates: start: 20021219, end: 20030421

REACTIONS (4)
  - ABORTION SPONTANEOUS [None]
  - DIABETIC NEUROPATHY [None]
  - DRUG EXPOSURE DURING PREGNANCY [None]
  - TYPE 2 DIABETES MELLITUS [None]
